FAERS Safety Report 5032461-1 (Version None)
Quarter: 2006Q2

REPORT INFORMATION
  Report Type: 
  Country: None (occurrence: None)
  Receive Date: 20060622
  Receipt Date: 20060615
  Transmission Date: 20061013
  Serious: Yes (Other)
  Sender: FDA-Public Use
  Company Number: PHEH2006US07861

PATIENT
  Age: 13 Year
  Sex: Female

DRUGS (4)
  1. FOCALIN XR [Suspect]
     Indication: ATTENTION DEFICIT/HYPERACTIVITY DISORDER
     Dosage: 10 MG, QD
     Route: 048
     Dates: start: 20050101
  2. SEROQUEL [Concomitant]
     Dosage: 125 MG, UNK
     Dates: start: 20050101
  3. ZOLOFT [Concomitant]
     Dosage: 75 MG, UNK
     Dates: start: 20050101
  4. DEPAKOTE [Concomitant]
     Dosage: 500 MG, UNK
     Dates: start: 20050101

REACTIONS (1)
  - ATRIOVENTRICULAR BLOCK FIRST DEGREE [None]
